FAERS Safety Report 7373033-3 (Version None)
Quarter: 2011Q1

REPORT INFORMATION
  Report Type: 
  Country: None (occurrence: None)
  Receive Date: 20110324
  Receipt Date: 20110311
  Transmission Date: 20110831
  Serious: Yes (Hospitalization, Other)
  Sender: FDA-Public Use
  Company Number: ES-PFIZER INC-2011064065

PATIENT
  Age: 75 Year
  Sex: Female

DRUGS (5)
  1. IBUPROFEN [Suspect]
     Indication: PAIN
     Dosage: 1.8 G, 3X/DAY
     Route: 048
     Dates: start: 20110214
  2. PAROXETINE [Concomitant]
     Indication: SPONDYLOLISTHESIS
     Dosage: 10 MG, DAILY
  3. LORAZEPAM [Concomitant]
     Indication: ANXIETY
     Dosage: 0.5 MG, DAILY
     Route: 048
  4. HYDROMORPHONE HCL [Suspect]
     Indication: SPONDYLOLISTHESIS
     Dosage: 16 MG, 1X/DAY
     Route: 048
     Dates: start: 20050101, end: 20110201
  5. LYRICA [Concomitant]
     Indication: SPONDYLOLISTHESIS
     Dosage: 100 MG, 2X/DAY
     Route: 048

REACTIONS (2)
  - RESPIRATORY FAILURE [None]
  - RENAL FAILURE [None]
